FAERS Safety Report 8056640-4 (Version None)
Quarter: 2012Q1

REPORT INFORMATION
  Report Type: 
  Country: None (occurrence: None)
  Receive Date: 20120119
  Receipt Date: 20120111
  Transmission Date: 20120608
  Serious: Yes (Hospitalization)
  Sender: FDA-Public Use
  Company Number: CHPA2012US001028

PATIENT
  Age: 77 Year
  Sex: Male

DRUGS (4)
  1. ASPIRIN [Concomitant]
     Indication: CARDIOVASCULAR EVENT PROPHYLAXIS
     Dosage: 81 MG, QD
     Route: 048
  2. GAS-X MAXIMUM STRENGTH SOFTGELS [Suspect]
     Indication: FLATULENCE
     Dosage: 1 DF, ONCE/SINGLE
     Route: 048
     Dates: start: 20111118, end: 20111118
  3. LISINOPRIL [Concomitant]
     Indication: HYPERTENSION
     Dosage: UNK, UNK
     Route: 048
     Dates: end: 20111117
  4. LISINOPRIL [Concomitant]
     Dosage: DOSE DOUBLED
     Route: 048
     Dates: start: 20111118

REACTIONS (1)
  - SYNCOPE [None]
